FAERS Safety Report 22651693 (Version 1)
Quarter: 2023Q2

REPORT INFORMATION
  Report Type: Spontaneous
  Country: US (occurrence: US)
  Receive Date: 20230628
  Receipt Date: 20230628
  Transmission Date: 20230722
  Serious: No
  Sender: FDA-Public Use
  Company Number: US-CTI BIOPHARMA-2023US03556

PATIENT

DRUGS (1)
  1. VONJO [Suspect]
     Active Substance: PACRITINIB
     Indication: Monoclonal gammopathy
     Dosage: 200 MG, BID
     Route: 048
     Dates: start: 20230127

REACTIONS (4)
  - Petechiae [Unknown]
  - Off label use [Unknown]
  - Epistaxis [Unknown]
  - Conjunctival haemorrhage [Unknown]
